FAERS Safety Report 11324906 (Version 2)
Quarter: 2015Q3

REPORT INFORMATION
  Report Type: Spontaneous
  Country: CN (occurrence: CN)
  Receive Date: 20150730
  Receipt Date: 20150731
  Transmission Date: 20151125
  Serious: Yes (Hospitalization)
  Sender: FDA-Public Use
  Company Number: CN-ELI_LILLY_AND_COMPANY-CN201507009890

PATIENT
  Sex: Female
  Weight: 57 kg

DRUGS (5)
  1. HUMALOG MIX50/50 [Suspect]
     Active Substance: INSULIN LISPRO
     Dosage: 16 U, EACH EVENING
     Route: 058
     Dates: start: 2013
  2. MELBIN                             /00082702/ [Concomitant]
     Active Substance: METFORMIN HYDROCHLORIDE
     Indication: BLOOD GLUCOSE
     Route: 048
  3. HUMALOG MIX50/50 [Suspect]
     Active Substance: INSULIN LISPRO
     Indication: TYPE 2 DIABETES MELLITUS
     Dosage: 26 U, EACH MORNING
     Route: 058
     Dates: start: 2013
  4. HUMALOG MIX50/50 [Suspect]
     Active Substance: INSULIN LISPRO
     Dosage: 20 U, QD
     Route: 058
     Dates: start: 20150106, end: 20150112
  5. VOGLIBOSE [Concomitant]
     Active Substance: VOGLIBOSE
     Indication: BLOOD GLUCOSE
     Route: 048

REACTIONS (5)
  - Injection site erythema [Recovered/Resolved]
  - Hyperphagia [Unknown]
  - Polyuria [Unknown]
  - Injection site swelling [Recovered/Resolved]
  - Polydipsia [Unknown]
